FAERS Safety Report 21714955 (Version 2)
Quarter: 2023Q1

REPORT INFORMATION
  Report Type: Report from Study
  Country: DE (occurrence: DE)
  Receive Date: 20221212
  Receipt Date: 20230316
  Transmission Date: 20230418
  Serious: Yes (Other)
  Sender: FDA-Public Use
  Company Number: DE-TAKEDA-2022TUS078778

PATIENT
  Age: 30 Year
  Sex: Female

DRUGS (4)
  1. VON WILLEBRAND FACTOR HUMAN [Suspect]
     Active Substance: VON WILLEBRAND FACTOR HUMAN
     Indication: Von Willebrand^s disease
     Dosage: 260 INTERNATIONAL UNIT
     Route: 042
     Dates: start: 20220421
  2. VON WILLEBRAND FACTOR HUMAN [Suspect]
     Active Substance: VON WILLEBRAND FACTOR HUMAN
     Dosage: 2600 INTERNATIONAL UNIT
     Route: 042
     Dates: start: 20220421
  3. VON WILLEBRAND FACTOR HUMAN [Suspect]
     Active Substance: VON WILLEBRAND FACTOR HUMAN
     Dosage: 3250 INTERNATIONAL UNIT
     Route: 042
     Dates: start: 20220421
  4. VON WILLEBRAND FACTOR HUMAN [Suspect]
     Active Substance: VON WILLEBRAND FACTOR HUMAN
     Dosage: 1300 INTERNATIONAL UNIT
     Route: 042
     Dates: start: 20220421

REACTIONS (7)
  - Autoimmune thyroiditis [Recovering/Resolving]
  - Epistaxis [Recovered/Resolved]
  - Restlessness [Not Recovered/Not Resolved]
  - Blood pressure abnormal [Recovering/Resolving]
  - Headache [Not Recovered/Not Resolved]
  - Tremor [Not Recovered/Not Resolved]
  - Tachycardia [Recovering/Resolving]

NARRATIVE: CASE EVENT DATE: 20221001
